FAERS Safety Report 22318479 (Version 2)
Quarter: 2023Q2

REPORT INFORMATION
  Report Type: Other
  Country: US (occurrence: None)
  Receive Date: 20230515
  Receipt Date: 20230516
  Transmission Date: 20230722
  Serious: Yes (Other)
  Sender: FDA-Public Use
  Company Number: US-ROCHE-3349504

PATIENT
  Age: 60 Year
  Sex: Female

DRUGS (17)
  1. ACTEMRA [Suspect]
     Active Substance: TOCILIZUMAB
     Indication: Rheumatoid arthritis
     Dosage: INJECT 0.9 ML EVERY 7 DAYS
     Route: 058
  2. ACTEMRA [Suspect]
     Active Substance: TOCILIZUMAB
  3. ASCORBIC ACID [Concomitant]
     Active Substance: ASCORBIC ACID
     Route: 048
  4. ASPIRIN [Concomitant]
     Active Substance: ASPIRIN
     Route: 048
  5. VOLTAREN [Concomitant]
     Active Substance: DICLOFENAC SODIUM
     Route: 061
  6. DIPHENHYDRAMINE [Concomitant]
     Active Substance: DIPHENHYDRAMINE
     Route: 048
  7. NORCO [Concomitant]
     Active Substance: ACETAMINOPHEN\HYDROCODONE BITARTRATE
     Indication: Arthralgia
     Dosage: STRENGTH: 5-325MG
  8. REMICADE [Concomitant]
     Active Substance: INFLIXIMAB
  9. XYLOCAINE [Concomitant]
     Active Substance: LIDOCAINE HYDROCHLORIDE
     Route: 061
  10. TOPROL XL [Concomitant]
     Active Substance: METOPROLOL SUCCINATE
     Route: 048
  11. DELTASONE [Concomitant]
     Active Substance: PREDNISONE
  12. DELTASONE [Concomitant]
     Active Substance: PREDNISONE
  13. DELTASONE [Concomitant]
     Active Substance: PREDNISONE
  14. DELTASONE [Concomitant]
     Active Substance: PREDNISONE
  15. AZULFIDINE [Concomitant]
     Active Substance: SULFASALAZINE
     Route: 048
  16. DESYREL [Concomitant]
     Active Substance: TRAZODONE HYDROCHLORIDE
     Route: 048
  17. COUMADIN [Concomitant]
     Active Substance: WARFARIN SODIUM
     Dosage: TAKE 2- 2.5 (10-12.5MG) DAILY AS DIRECTED. ADJUST DOSE PER INR RESULTS.

REACTIONS (1)
  - Cerebrovascular accident [Recovered/Resolved]
